FAERS Safety Report 5820335-5 (Version None)
Quarter: 2008Q3

REPORT INFORMATION
  Report Type: 
  Country: None (occurrence: None)
  Receive Date: 20080724
  Receipt Date: 20070607
  Transmission Date: 20090109
  Serious: No
  Sender: FDA-Public Use
  Company Number: A0654646A

PATIENT
  Age: 43 Year
  Sex: Female

DRUGS (6)
  1. AVANDIA [Suspect]
     Dosage: 8MG PER DAY
     Route: 048
     Dates: start: 20060101
  2. JANUVIA [Concomitant]
  3. PRECOSE [Concomitant]
  4. AMARYL [Concomitant]
  5. LIPITOR [Concomitant]
  6. GEMFIBROZIL [Concomitant]

REACTIONS (2)
  - DRY MOUTH [None]
  - WEIGHT INCREASED [None]
